FAERS Safety Report 14081685 (Version 1)
Quarter: 2017Q4

REPORT INFORMATION
  Report Type: Spontaneous
  Country: US (occurrence: None)
  Receive Date: 20171012
  Receipt Date: 20171012
  Transmission Date: 20180321
  Serious: No
  Sender: FDA-Public Use
  Company Number: None

PATIENT
  Age: 39 Year
  Sex: Male
  Weight: 98.2 kg

DRUGS (1)
  1. BUPRENORPHINE/NALOXONE [Suspect]
     Active Substance: BUPRENORPHINE\NALOXONE
     Indication: DRUG DEPENDENCE
     Dosage: 8/2MG
     Route: 048
     Dates: start: 20160629, end: 20160718

REACTIONS (10)
  - Hyperhidrosis [None]
  - Rhinorrhoea [None]
  - Withdrawal syndrome [None]
  - Tremor [None]
  - Heart rate increased [None]
  - Arthralgia [None]
  - Bone pain [None]
  - Lacrimation increased [None]
  - Anxiety [None]
  - Irritability [None]

NARRATIVE: CASE EVENT DATE: 20160629
